FAERS Safety Report 4392345-9 (Version None)
Quarter: 2004Q3

REPORT INFORMATION
  Report Type: 
  Country: None (occurrence: None)
  Receive Date: 20040702
  Receipt Date: 20040219
  Transmission Date: 20050211
  Serious: Yes (Other)
  Sender: FDA-Public Use
  Company Number: 2004UW02971

PATIENT
  Sex: Female
  Weight: 97.5234 kg

DRUGS (5)
  1. CRESTOR [Suspect]
     Indication: BLOOD CHOLESTEROL INCREASED
     Dosage: 10 MG PO
     Route: 048
     Dates: start: 20040101
  2. THYROID TAB [Concomitant]
  3. IRON [Concomitant]
  4. PHENTERMINE [Concomitant]
  5. AFRIN [Concomitant]

REACTIONS (2)
  - FEELING JITTERY [None]
  - VISION BLURRED [None]
